FAERS Safety Report 17604018 (Version 1)
Quarter: 2020Q1

REPORT INFORMATION
  Report Type: Spontaneous
  Country: GB (occurrence: GB)
  Receive Date: 20200331
  Receipt Date: 20200331
  Transmission Date: 20200409
  Serious: Yes (Hospitalization)
  Sender: FDA-Public Use
  Company Number: GB-ACCORD-177460

PATIENT
  Age: 79 Year
  Sex: Male

DRUGS (14)
  1. ATORVASTATIN [Concomitant]
     Active Substance: ATORVASTATIN
     Dosage: AT NIGHT. PATIENT STOPPED.
     Dates: start: 20190528
  2. SALBUTAMOL [Concomitant]
     Active Substance: ALBUTEROL
     Dosage: TWO PUFFS TO BE INHALED UP TO FOUR TIMES A DAY
     Route: 055
  3. TAMSULOSIN/TAMSULOSIN HYDROCHLORIDE [Concomitant]
     Active Substance: TAMSULOSIN HYDROCHLORIDE
     Dosage: EACH NIGHT
     Dates: start: 20190528
  4. LOSARTAN. [Concomitant]
     Active Substance: LOSARTAN
  5. BISOPROLOL [Concomitant]
     Active Substance: BISOPROLOL
     Dosage: EACH MORNING
  6. ACETYLSALICYLIC ACID [Suspect]
     Active Substance: ASPIRIN
     Indication: PRODUCT USED FOR UNKNOWN INDICATION
     Dosage: WITH FOOD
  7. DIHYDROCODEINE [Concomitant]
     Active Substance: DIHYDROCODEINE
     Dosage: ONE TO BE TAKEN EVERY FOUR TO SIX HOURS.
  8. PREDNISOLONE. [Concomitant]
     Active Substance: PREDNISOLONE
     Dosage: EACH MORNING WITH BREAKFAST--PMR, PT STATES NOT STARTED YET
     Dates: start: 20190812
  9. SENNA ALEXANDRINA [Concomitant]
     Active Substance: SENNA LEAF
     Dosage: AT NIGHT- PATIENT TOPPED
     Dates: start: 20190528
  10. PRASUGREL. [Suspect]
     Active Substance: PRASUGREL
     Indication: PRODUCT USED FOR UNKNOWN INDICATION
     Dosage: WITH FOOD--TEA TIME
  11. DIHYDROCODEINE [Concomitant]
     Active Substance: DIHYDROCODEINE
     Dosage: EACH MORNING. 5MG/40MG
  12. RANITIDINE. [Concomitant]
     Active Substance: RANITIDINE
     Dates: start: 20190625
  13. SYMBICORT [Concomitant]
     Active Substance: BUDESONIDE\FORMOTEROL FUMARATE DIHYDRATE
     Dosage: 400/12. PUFF, INHALED.
     Route: 055
  14. BRALTUS [Concomitant]
     Active Substance: TIOTROPIUM BROMIDE
     Dosage: INHALE THE CONTENTS OF ONE CAPSULE EACH MORNING
     Route: 055

REACTIONS (1)
  - Haematuria [Recovered/Resolved]
